FAERS Safety Report 5284355-4 (Version None)
Quarter: 2007Q2

REPORT INFORMATION
  Report Type: 
  Country: None (occurrence: None)
  Receive Date: 20070403
  Receipt Date: 20070326
  Transmission Date: 20071010
  Serious: Yes (Other)
  Sender: FDA-Public Use
  Company Number: PHBS2006CL09459

PATIENT
  Age: 29 Year
  Sex: Female
  Weight: 76 kg

DRUGS (3)
  1. TORECAN [Suspect]
     Indication: VOMITING
     Dosage: 6.5 MG, QD
     Route: 054
  2. JENGIBRE [Concomitant]
     Dosage: 1 G, QD
  3. IBUPROFEN [Concomitant]

REACTIONS (3)
  - CAESAREAN SECTION [None]
  - DRUG EXPOSURE DURING PREGNANCY [None]
  - VOMITING [None]
